FAERS Safety Report 5010042-3 (Version None)
Quarter: 2006Q2

REPORT INFORMATION
  Report Type: 
  Country: None (occurrence: None)
  Receive Date: 20060523
  Receipt Date: 20060512
  Transmission Date: 20061013
  Serious: Yes (Death, Other)
  Sender: FDA-Public Use
  Company Number: 2006063526

PATIENT
  Age: 70 Year
  Sex: Female

DRUGS (3)
  1. INSPRA [Suspect]
     Indication: MYOCARDIAL INFARCTION
     Dosage: ORAL
     Route: 048
  2. INSPRA [Suspect]
     Indication: VENTRICULAR DYSFUNCTION
     Dosage: ORAL
     Route: 048
  3. RAMIPRIL [Concomitant]

REACTIONS (2)
  - HYPERKALAEMIA [None]
  - RENAL IMPAIRMENT [None]
